FAERS Safety Report 6976690-6 (Version None)
Quarter: 2010Q3

REPORT INFORMATION
  Report Type: 
  Country: None (occurrence: None)
  Receive Date: 20100910
  Receipt Date: 20090427
  Transmission Date: 20110219
  Serious: No
  Sender: FDA-Public Use
  Company Number: US-WYE-H09123309

PATIENT
  Sex: Female
  Weight: 52.21 kg

DRUGS (1)
  1. PRISTIQ [Suspect]
     Dosage: TOOK 350 MG
     Route: 048

REACTIONS (1)
  - OVERDOSE [None]
